FAERS Safety Report 12729092 (Version 2)
Quarter: 2016Q3

REPORT INFORMATION
  Report Type: Spontaneous
  Country: US (occurrence: US)
  Receive Date: 20160909
  Receipt Date: 20160920
  Transmission Date: 20161109
  Serious: No
  Sender: FDA-Public Use
  Company Number: US-ASTRAZENECA-2016SE95473

PATIENT
  Sex: Male
  Weight: 108.9 kg

DRUGS (1)
  1. KOMBIGLYZE XR [Suspect]
     Active Substance: METFORMIN HYDROCHLORIDE\SAXAGLIPTIN HYDROCHLORIDE
     Indication: TYPE 2 DIABETES MELLITUS
     Dosage: 5 MG / 1000 MG
     Route: 048
     Dates: start: 201408

REACTIONS (4)
  - Dyspepsia [Unknown]
  - Medication residue present [Unknown]
  - Blood glucose increased [Unknown]
  - Stress [Unknown]
